FAERS Safety Report 10638234 (Version 9)
Quarter: 2019Q4

REPORT INFORMATION
  Report Type: Report from Study
  Country: US (occurrence: US)
  Receive Date: 20141208
  Receipt Date: 20191202
  Transmission Date: 20200122
  Serious: Yes (Hospitalization, Disabling, Other)
  Sender: FDA-Public Use
  Company Number: US-SA-2014SA149672

PATIENT
  Age: 51 Year
  Sex: Female
  Weight: 74.8 kg

DRUGS (16)
  1. LAMICTAL [Concomitant]
     Active Substance: LAMOTRIGINE
     Indication: SEIZURE
     Dosage: 100 MG,BID
     Dates: start: 2004
  2. TERIFLUNOMIDE. [Suspect]
     Active Substance: TERIFLUNOMIDE
     Dosage: 14 MG,QD
     Route: 048
     Dates: start: 20141027
  3. TERIFLUNOMIDE. [Suspect]
     Active Substance: TERIFLUNOMIDE
     Dosage: 14 MG,QD
     Route: 048
     Dates: start: 20161027
  4. VITAMIN D3 [Concomitant]
     Active Substance: CHOLECALCIFEROL
     Indication: MULTIPLE SCLEROSIS
     Dosage: 5000 DF,UNK
  5. ESCITALOPRAM [Concomitant]
     Active Substance: ESCITALOPRAM OXALATE
     Indication: DEPRESSION
     Dosage: UNK UNK, UNK
     Route: 065
  6. TERIFLUNOMIDE. [Suspect]
     Active Substance: TERIFLUNOMIDE
     Dosage: 14 MG,QD
     Route: 048
     Dates: start: 201507
  7. TERIFLUNOMIDE. [Suspect]
     Active Substance: TERIFLUNOMIDE
     Dosage: 14 MG,QD
     Route: 048
     Dates: start: 201507
  8. LEXAPRO [Suspect]
     Active Substance: ESCITALOPRAM OXALATE
     Indication: DEPRESSION
     Dosage: 20 MG,QD
     Route: 065
     Dates: start: 2006, end: 20161020
  9. METFORMIN [Concomitant]
     Active Substance: METFORMIN HYDROCHLORIDE
     Indication: POLYCYSTIC OVARIES
     Dosage: UNK
  10. CYANOCOBALAMIN. [Concomitant]
     Active Substance: CYANOCOBALAMIN
     Dosage: 2500 UG,UNK
  11. VITAMIN D3 [Concomitant]
     Active Substance: CHOLECALCIFEROL
     Indication: IMMUNE ENHANCEMENT THERAPY
  12. TERIFLUNOMIDE. [Suspect]
     Active Substance: TERIFLUNOMIDE
     Indication: MULTIPLE SCLEROSIS
     Dosage: 14 MG, QD
     Route: 048
     Dates: start: 201407
  13. LEXAPRO [Suspect]
     Active Substance: ESCITALOPRAM OXALATE
     Indication: ANXIETY
  14. TERIFLUNOMIDE. [Suspect]
     Active Substance: TERIFLUNOMIDE
     Dosage: 14 MG,QD
     Route: 048
     Dates: start: 201702
  15. CYANOCOBALAMIN. [Concomitant]
     Active Substance: CYANOCOBALAMIN
     Indication: MULTIPLE SCLEROSIS
     Dosage: 1000 DF,UNK
  16. OMEPRAZOLE. [Concomitant]
     Active Substance: OMEPRAZOLE

REACTIONS (35)
  - Unevaluable event [Not Recovered/Not Resolved]
  - Stress [Recovered/Resolved]
  - Brain oedema [Unknown]
  - Abdominal pain [Unknown]
  - Somnolence [Unknown]
  - Urinary incontinence [Recovering/Resolving]
  - Nasopharyngitis [Recovering/Resolving]
  - Sinus disorder [Recovering/Resolving]
  - Respiratory disorder [Recovering/Resolving]
  - Blood glucose increased [Unknown]
  - Headache [Unknown]
  - Hypertension [Unknown]
  - Nephrolithiasis [Not Recovered/Not Resolved]
  - Multiple sclerosis relapse [Recovered/Resolved]
  - Nervous system disorder [Recovering/Resolving]
  - Asthenia [Unknown]
  - Seizure [Recovered/Resolved]
  - Hypoaesthesia [Unknown]
  - Muscular weakness [Unknown]
  - Migraine [Recovered/Resolved]
  - Weight decreased [Not Recovered/Not Resolved]
  - Vomiting [Unknown]
  - Cough [Recovered/Resolved]
  - Blood cholesterol abnormal [Unknown]
  - Paraesthesia [Unknown]
  - Sleep disorder [Recovered/Resolved]
  - Nasopharyngitis [Recovering/Resolving]
  - Fatigue [Recovering/Resolving]
  - Fatigue [Unknown]
  - Cognitive disorder [Recovering/Resolving]
  - Mental disorder [Recovering/Resolving]
  - Nasal congestion [Recovering/Resolving]
  - Feeding disorder [Recovered/Resolved]
  - Alopecia [Recovered/Resolved]
  - Overdose [Unknown]

NARRATIVE: CASE EVENT DATE: 201411
